FAERS Safety Report 5747047-0 (Version None)
Quarter: 2008Q2

REPORT INFORMATION
  Report Type: 
  Country: None (occurrence: None)
  Receive Date: 20080522
  Receipt Date: 20080515
  Transmission Date: 20081010
  Serious: Yes (Other)
  Sender: FDA-Public Use
  Company Number: PHEH2008US04640

PATIENT
  Age: 35 Year
  Sex: Male
  Weight: 122.45 kg

DRUGS (8)
  1. RITALIN [Suspect]
  2. PROVIGIL [Suspect]
     Dosage: 200 MG, UNK
     Route: 048
  3. PAXIL [Suspect]
     Indication: DEPRESSION
     Route: 048
  4. CONCERTA [Suspect]
     Route: 048
  5. DOXEPIN HCL [Suspect]
     Indication: DEPRESSION
     Route: 048
  6. FINASTERIDE [Suspect]
     Route: 048
  7. TESTOSTERONE [Suspect]
  8. SLEEPING [Suspect]

REACTIONS (5)
  - AGGRESSION [None]
  - HOMICIDE [None]
  - JUDGEMENT IMPAIRED [None]
  - LOSS OF CONSCIOUSNESS [None]
  - TREMOR [None]
